FAERS Safety Report 20172173 (Version 2)
Quarter: 2021Q4

REPORT INFORMATION
  Report Type: Spontaneous
  Country: US (occurrence: US)
  Receive Date: 20211210
  Receipt Date: 20211227
  Transmission Date: 20220303
  Serious: Yes (Other)
  Sender: FDA-Public Use
  Company Number: US-TEVA-2021-US-1985049

PATIENT
  Sex: Female

DRUGS (2)
  1. NEFAZODONE HYDROCHLORIDE [Interacting]
     Active Substance: NEFAZODONE HYDROCHLORIDE
     Indication: Product used for unknown indication
     Route: 065
  2. TRAZODONE [Interacting]
     Active Substance: TRAZODONE HYDROCHLORIDE
     Route: 065

REACTIONS (5)
  - Serotonin syndrome [Unknown]
  - Illness [Unknown]
  - Drug interaction [Unknown]
  - Adverse event [Not Recovered/Not Resolved]
  - Drug withdrawal syndrome [Unknown]

NARRATIVE: CASE EVENT DATE: 20211216
